FAERS Safety Report 7221629-1 (Version None)
Quarter: 2011Q1

REPORT INFORMATION
  Report Type: 
  Country: None (occurrence: None)
  Receive Date: 20110112
  Receipt Date: 20110106
  Transmission Date: 20110831
  Serious: Yes (Death, Life-Threatening, Hospitalization)
  Sender: FDA-Public Use
  Company Number: JP-ROCHE-714596

PATIENT
  Sex: Female
  Weight: 35 kg

DRUGS (7)
  1. AVASTIN [Suspect]
     Route: 041
     Dates: start: 20100615, end: 20100615
  2. KETOPROFEN [Concomitant]
     Dosage: DRUG: MOHRUS TAPE
     Route: 061
     Dates: start: 20100129, end: 20100706
  3. AVASTIN [Suspect]
     Indication: LUNG ADENOCARCINOMA METASTATIC
     Route: 041
     Dates: start: 20100413, end: 20100413
  4. AVASTIN [Suspect]
     Route: 041
     Dates: start: 20100520, end: 20100520
  5. CARBOPLATIN [Concomitant]
     Route: 041
     Dates: start: 20100413, end: 20100413
  6. TAXOL [Concomitant]
     Route: 041
     Dates: start: 20100413, end: 20100413
  7. GASTER D [Concomitant]
     Route: 048
     Dates: start: 20100425, end: 20100705

REACTIONS (11)
  - NON-SMALL CELL LUNG CANCER METASTATIC [None]
  - HYPONATRAEMIA [None]
  - VOMITING [None]
  - NEOPLASM MALIGNANT [None]
  - BLOOD POTASSIUM ABNORMAL [None]
  - DISEASE PROGRESSION [None]
  - NAUSEA [None]
  - SHOCK [None]
  - GASTROINTESTINAL PERFORATION [None]
  - WHITE BLOOD CELL COUNT DECREASED [None]
  - NEUTROPHIL COUNT DECREASED [None]
